FAERS Safety Report 13544261 (Version 1)
Quarter: 2017Q2

REPORT INFORMATION
  Report Type: Spontaneous
  Country: US (occurrence: US)
  Receive Date: 20170515
  Receipt Date: 20170515
  Transmission Date: 20170830
  Serious: No
  Sender: FDA-Public Use
  Company Number: US-BAYER-2017-091024

PATIENT
  Sex: Male

DRUGS (1)
  1. MIRALAX [Suspect]
     Active Substance: POLYETHYLENE GLYCOL 3350
     Indication: GASTROINTESTINAL DISORDER
     Dosage: UNK,;1 CAPFUL DOSE
     Route: 048
     Dates: start: 20170509, end: 20170510

REACTIONS (2)
  - Drug ineffective [Unknown]
  - Product contamination physical [Unknown]

NARRATIVE: CASE EVENT DATE: 20170509
